FAERS Safety Report 13525935 (Version 2)
Quarter: 2017Q2

REPORT INFORMATION
  Report Type: Spontaneous
  Country: US (occurrence: US)
  Receive Date: 20170509
  Receipt Date: 20170524
  Transmission Date: 20170830
  Serious: Yes (Death, Hospitalization)
  Sender: FDA-Public Use
  Company Number: US-ROCHE-1931270

PATIENT
  Age: 77 Year
  Sex: Male

DRUGS (1)
  1. ESBRIET [Suspect]
     Active Substance: PIRFENIDONE
     Indication: IDIOPATHIC PULMONARY FIBROSIS
     Dosage: NO
     Route: 065

REACTIONS (8)
  - Multiple organ dysfunction syndrome [Fatal]
  - Acute myocardial infarction [Fatal]
  - Acute respiratory failure [Fatal]
  - Renal failure [Fatal]
  - Cardiac failure congestive [Fatal]
  - Respiratory failure [Not Recovered/Not Resolved]
  - Cardiogenic shock [Fatal]
  - Pneumonia aspiration [Not Recovered/Not Resolved]
